FAERS Safety Report 9730156 (Version 1)
Quarter: 2013Q4

REPORT INFORMATION
  Report Type: Spontaneous
  Country: DE (occurrence: DE)
  Receive Date: 20131204
  Receipt Date: 20131204
  Transmission Date: 20140711
  Serious: Yes (Hospitalization, Other)
  Sender: FDA-Public Use
  Company Number: DE-GILEAD-2013-0088921

PATIENT
  Age: 76 Year
  Sex: Male

DRUGS (1)
  1. RANOLAZINE [Suspect]
     Indication: CORONARY ARTERY DISEASE
     Dosage: 375 MG, BID
     Route: 048
     Dates: start: 20120829, end: 20121001

REACTIONS (3)
  - Cerebrovascular accident [Recovered/Resolved]
  - Sensation of heaviness [Recovered/Resolved]
  - Tremor [Recovered/Resolved]
